FAERS Safety Report 5008272-X (Version None)
Quarter: 2006Q2

REPORT INFORMATION
  Report Type: 
  Country: None (occurrence: None)
  Receive Date: 20060523
  Receipt Date: 20050811
  Transmission Date: 20061013
  Serious: No
  Sender: FDA-Public Use
  Company Number: A-US2005-09737

PATIENT
  Age: 50 Year
  Sex: Female

DRUGS (2)
  1. FLOLAN [Suspect]
     Indication: PULMONARY HYPERTENSION
     Route: 042
     Dates: start: 19980101
  2. TRACLEER [Suspect]
     Indication: PULMONARY HYPERTENSION
     Dosage: 62.5MG TWICE PER DAY
     Route: 048
     Dates: start: 20050501, end: 20050531

REACTIONS (1)
  - FLUSHING [None]
